FAERS Safety Report 8908855 (Version 1)
Quarter: 2012Q4

REPORT INFORMATION
  Report Type: 
  Country: US (occurrence: US)
  Receive Date: 20121113
  Receipt Date: 20121113
  Transmission Date: 20130627
  Serious: No
  Sender: FDA-Public Use
  Company Number: US-AMGEN-USASP2012011825

PATIENT
  Age: 62 Year
  Sex: Female

DRUGS (1)
  1. ENBREL [Suspect]
     Indication: RHEUMATOID ARTHRITIS
     Dosage: 12.5 mg, 2 times/wk
     Dates: start: 19981201, end: 201112

REACTIONS (5)
  - Respiratory disorder [Recovered/Resolved]
  - White blood cell count decreased [Recovered/Resolved]
  - Hypersensitivity [Recovered/Resolved]
  - Upper respiratory tract infection [Not Recovered/Not Resolved]
  - Urinary tract infection [Not Recovered/Not Resolved]
